FAERS Safety Report 7312282-7 (Version None)
Quarter: 2011Q1

REPORT INFORMATION
  Report Type: 
  Country: None (occurrence: None)
  Receive Date: 20110224
  Receipt Date: 20110216
  Transmission Date: 20110831
  Serious: Yes (Other)
  Sender: FDA-Public Use
  Company Number: B0698437A

PATIENT
  Age: 63 Year
  Sex: Female

DRUGS (2)
  1. XELODA [Concomitant]
     Route: 048
     Dates: start: 20101021
  2. TYKERB [Suspect]
     Indication: BREAST CANCER
     Dosage: 1250MG PER DAY
     Route: 048
     Dates: start: 20101021

REACTIONS (1)
  - BLOOD AMYLASE INCREASED [None]
